FAERS Safety Report 14100411 (Version 1)
Quarter: 2017Q4

REPORT INFORMATION
  Report Type: Spontaneous
  Country: US (occurrence: US)
  Receive Date: 20171017
  Receipt Date: 20171017
  Transmission Date: 20180321
  Serious: Yes (Congenital Anomaly, Other)
  Sender: FDA-Public Use
  Company Number: US-ABBVIE-17P-163-2132648-00

PATIENT

DRUGS (3)
  1. VALPROIC ACID. [Suspect]
     Active Substance: VALPROIC ACID
     Indication: MATERNAL EXPOSURE TIMING UNSPECIFIED
     Route: 064
  2. DIPHENYLHYDANTOIN [Suspect]
     Active Substance: PHENYTOIN
     Indication: MATERNAL EXPOSURE TIMING UNSPECIFIED
     Route: 064
  3. MEPHOBARBITAL. [Suspect]
     Active Substance: MEPHOBARBITAL
     Indication: MATERNAL EXPOSURE TIMING UNSPECIFIED
     Route: 064

REACTIONS (9)
  - Cerebral ventricle dilatation [Unknown]
  - Craniofacial deformity [Unknown]
  - Limb malformation [Unknown]
  - Arrhythmia [Unknown]
  - Dysplasia [Unknown]
  - Anomaly of external ear congenital [Unknown]
  - Foetal anticonvulsant syndrome [Unknown]
  - Camptodactyly congenital [Unknown]
  - Foetal exposure during pregnancy [Unknown]
